FAERS Safety Report 14671314 (Version 1)
Quarter: 2018Q1

REPORT INFORMATION
  Report Type: Report from Study
  Country: CA (occurrence: CA)
  Receive Date: 20180323
  Receipt Date: 20180323
  Transmission Date: 20180509
  Serious: Yes (Other)
  Sender: FDA-Public Use
  Company Number: CA-BRISTOL-MYERS SQUIBB COMPANY-BMS-2018-015250

PATIENT
  Age: 74 Year
  Sex: Female

DRUGS (1)
  1. ABATACEPT [Suspect]
     Active Substance: ABATACEPT
     Indication: ARTHRITIS
     Dosage: 750 MG, Q4WK
     Route: 042
     Dates: start: 20110309

REACTIONS (3)
  - Asthma [Recovering/Resolving]
  - Inflammation [Recovering/Resolving]
  - Cataract [Recovered/Resolved]

NARRATIVE: CASE EVENT DATE: 20180214
